FAERS Safety Report 12679780 (Version 1)
Quarter: 2016Q3

REPORT INFORMATION
  Report Type: Spontaneous
  Country: GB (occurrence: GB)
  Receive Date: 20160824
  Receipt Date: 20160824
  Transmission Date: 20161109
  Serious: Yes (Other)
  Sender: FDA-Public Use
  Company Number: GB-COL_19935_2015

PATIENT
  Age: 49 Year
  Sex: Female
  Weight: 43 kg

DRUGS (2)
  1. FERROUS SULFATE. [Concomitant]
     Active Substance: FERROUS SULFATE
     Dosage: 1 DF/ THREE TIMES PER DAY/
     Dates: start: 20150408, end: 20150506
  2. CHLORHEXIDINE ACETATE 1% [Suspect]
     Active Substance: CHLORHEXIDINE ACETATE
     Indication: PRODUCT USED FOR UNKNOWN INDICATION
     Dosage: NI/NI/
     Dates: start: 20150529

REACTIONS (2)
  - Hypersensitivity [Unknown]
  - Rash [Recovered/Resolved]

NARRATIVE: CASE EVENT DATE: 20150529
